FAERS Safety Report 17563403 (Version 4)
Quarter: 2020Q4

REPORT INFORMATION
  Report Type: Spontaneous
  Country: US (occurrence: US)
  Receive Date: 20200319
  Receipt Date: 20201008
  Transmission Date: 20210113
  Serious: Yes (Death, Hospitalization, Other)
  Sender: FDA-Public Use
  Company Number: US-CATALYST PHARMACEUTICALS, INC-2020CAT00046

PATIENT
  Age: 69 Year
  Sex: Male
  Weight: 65.76 kg

DRUGS (17)
  1. PYRIDOSTIGMINE BROMIDE. [Concomitant]
     Active Substance: PYRIDOSTIGMINE BROMIDE
     Dosage: 180 MG, 3X/DAY
  2. ASPIRIN. [Concomitant]
     Active Substance: ASPIRIN
     Dosage: 81 MG, 1X/DAY
  3. RADIATION [Suspect]
     Active Substance: RADIATION THERAPY
     Indication: LARGE CELL LUNG CANCER
     Dosage: UNK
     Dates: end: 20200706
  4. PYRIDOSTIGMINE BROMIDE. [Concomitant]
     Active Substance: PYRIDOSTIGMINE BROMIDE
     Dosage: 180 MG, 2X/DAY
  5. OMEPRAZOLE. [Concomitant]
     Active Substance: OMEPRAZOLE
     Dosage: 20 MG, 1X/DAY
  6. ETOPOSIDE. [Concomitant]
     Active Substance: ETOPOSIDE
     Dosage: 100 MG, 3X/MONTH
     Route: 042
  7. FIRDAPSE [Suspect]
     Active Substance: AMIFAMPRIDINE PHOSPHATE
     Dosage: 20 MG, 4X/DAY
  8. LOSARTAN. [Concomitant]
     Active Substance: LOSARTAN
     Dosage: 25 MG, 1X/DAY
  9. ALOXI [Concomitant]
     Active Substance: PALONOSETRON HYDROCHLORIDE
     Dosage: 0.25 MG, 3X/MONTH
     Route: 042
  10. CHEMOTHERAPY [Suspect]
     Active Substance: UNSPECIFIED INGREDIENT
     Dosage: UNK
     Dates: end: 20200131
  11. MIRTAZAPINE. [Concomitant]
     Active Substance: MIRTAZAPINE
     Dosage: 30 MG, 1X/DAY AT BEDTIME
  12. FIRDAPSE [Suspect]
     Active Substance: AMIFAMPRIDINE PHOSPHATE
     Dosage: 20 MG, 4X/DAY (EVERY 6 HOURS)
     Route: 048
     Dates: end: 20200907
  13. ONDANSETRON [Concomitant]
     Active Substance: ONDANSETRON
     Dosage: 8 MG, AS NEEDED
  14. CARBOPLATIN. [Concomitant]
     Active Substance: CARBOPLATIN
     Dosage: 150 MG, 3X/MONTH
     Route: 042
  15. FIRDAPSE [Suspect]
     Active Substance: AMIFAMPRIDINE PHOSPHATE
     Indication: MYASTHENIC SYNDROME
     Dosage: 20 MG, 4X/DAY (EVERY 6 HOURS)
     Route: 048
  16. NEULASTA [Suspect]
     Active Substance: PEGFILGRASTIM
  17. DEXAMETHASONE. [Concomitant]
     Active Substance: DEXAMETHASONE
     Dosage: 10 MG, 3X/MONTH
     Route: 042

REACTIONS (16)
  - Hemiplegia [Recovered/Resolved]
  - Asthenia [Not Recovered/Not Resolved]
  - Arthralgia [Not Recovered/Not Resolved]
  - Aphasia [Recovered/Resolved]
  - Fatigue [Not Recovered/Not Resolved]
  - Muscle spasms [Recovered/Resolved]
  - Balance disorder [Recovered/Resolved]
  - Metastases to central nervous system [None]
  - Therapeutic product effect increased [Unknown]
  - Withdrawal syndrome [Recovered/Resolved]
  - Condition aggravated [Recovering/Resolving]
  - Dysphonia [Not Recovered/Not Resolved]
  - Death [Fatal]
  - Paralysis [Recovering/Resolving]
  - Gait disturbance [Recovered/Resolved]
  - Unevaluable event [Unknown]

NARRATIVE: CASE EVENT DATE: 202009
